FAERS Safety Report 4393970-1 (Version None)
Quarter: 2004Q3

REPORT INFORMATION
  Report Type: 
  Country: None (occurrence: None)
  Receive Date: 20040702
  Receipt Date: 20040616
  Transmission Date: 20050211
  Serious: Yes (Hospitalization)
  Sender: FDA-Public Use
  Company Number: 2004AP03245

PATIENT
  Age: 69 Year
  Sex: Female

DRUGS (5)
  1. ANAPEINE [Suspect]
     Indication: EPIDURAL ANAESTHESIA
     Dates: start: 20040601, end: 20040601
  2. ANAPEINE [Suspect]
     Indication: EPIDURAL ANAESTHESIA
     Dosage: POST-OPERATIVELY
     Dates: start: 20040601
  3. MARCAINE [Suspect]
     Indication: SPINAL ANAESTHESIA
     Dates: start: 20040601, end: 20040601
  4. PROPOFOL [Concomitant]
  5. KETAMINE HCL [Concomitant]

REACTIONS (3)
  - ANAESTHETIC COMPLICATION [None]
  - ILLUSION [None]
  - MOVEMENT DISORDER [None]
